FAERS Safety Report 10515748 (Version 1)
Quarter: 2014Q4

REPORT INFORMATION
  Report Type: Spontaneous
  Country: US (occurrence: None)
  Receive Date: 20141001
  Receipt Date: 20141001
  Transmission Date: 20150528
  Serious: Yes (Other)
  Sender: FDA-Public Use
  Company Number: 2014007204

PATIENT

DRUGS (1)
  1. VIMPAT [Suspect]
     Active Substance: LACOSAMIDE
     Indication: SEIZURE

REACTIONS (7)
  - Aura [None]
  - Thinking abnormal [None]
  - Suicidal ideation [None]
  - Aphasia [None]
  - Memory impairment [None]
  - Confusional state [None]
  - Drug ineffective [None]
